FAERS Safety Report 7514695-7 (Version None)
Quarter: 2011Q2

REPORT INFORMATION
  Report Type: 
  Country: None (occurrence: None)
  Receive Date: 20110601
  Receipt Date: 20110518
  Transmission Date: 20111010
  Serious: Yes (Hospitalization, Other)
  Sender: FDA-Public Use
  Company Number: PL-RANBAXY-2011RR-44032

PATIENT
  Age: 51 Year
  Sex: Male

DRUGS (9)
  1. ASPIRIN [Concomitant]
     Dosage: 75 MG, QD
  2. ISOSORBIDE MONONITRATE [Concomitant]
     Dosage: 60 MG, QD
  3. INSULIN [Concomitant]
  4. SIMVASTATIN [Suspect]
     Dosage: 20 MG, QD
  5. BISOPROLOL FUMARATE [Concomitant]
     Dosage: 10 MG, QD
  6. SPIRONOLACTONE [Suspect]
     Dosage: 50 MG, QD
  7. AMLODIPINE [Concomitant]
     Dosage: 10 MG, QD
  8. INDAPAMIDE [Concomitant]
     Dosage: 1.5 MG, QD
  9. QUINAPRIL [Suspect]
     Dosage: 20 MG, BID

REACTIONS (6)
  - SYNCOPE [None]
  - DIARRHOEA [None]
  - MYALGIA [None]
  - RHABDOMYOLYSIS [None]
  - HYPERKALAEMIA [None]
  - ATRIOVENTRICULAR BLOCK COMPLETE [None]
